FAERS Safety Report 7260206-3 (Version None)
Quarter: 2011Q1

REPORT INFORMATION
  Report Type: 
  Country: None (occurrence: None)
  Receive Date: 20110130
  Receipt Date: 20101209
  Transmission Date: 20110831
  Serious: No
  Sender: FDA-Public Use
  Company Number: US-ABBOTT-10P-163-0676887-00

PATIENT
  Sex: Male
  Weight: 59.02 kg

DRUGS (6)
  1. IMODIUM [Concomitant]
     Indication: DIARRHOEA
     Route: 048
  2. PENTASA [Concomitant]
     Indication: CROHN'S DISEASE
     Route: 048
  3. HUMIRA [Suspect]
     Indication: CROHN'S DISEASE
     Route: 058
     Dates: start: 20090101, end: 20100901
  4. HUMIRA [Suspect]
     Dosage: HELD ONE DOSE
     Route: 058
     Dates: start: 20100901
  5. AZATHIOPRINE [Concomitant]
     Indication: CROHN'S DISEASE
     Route: 048
  6. LOCHOLEST [Concomitant]
     Indication: DIARRHOEA
     Dosage: 1 IN 1 DAY; PKT/DAY
     Route: 048

REACTIONS (4)
  - BLISTER [None]
  - PRURITUS [None]
  - ACARODERMATITIS [None]
  - RASH [None]
